FAERS Safety Report 9205744 (Version 2)
Quarter: 2013Q3

REPORT INFORMATION
  Report Type: Spontaneous
  Country: US (occurrence: US)
  Receive Date: 20130403
  Receipt Date: 20130702
  Transmission Date: 20140515
  Serious: Yes (Other)
  Sender: FDA-Public Use
  Company Number: US-SHIRE-ALL1-2013-02045

PATIENT
  Age: 13 Year
  Sex: Male
  Weight: 43.08 kg

DRUGS (8)
  1. INTUNIV [Suspect]
     Indication: ATTENTION DEFICIT/HYPERACTIVITY DISORDER
     Dosage: 1 MG, 1X/DAY:QD
     Route: 048
  2. INTUNIV [Suspect]
     Dosage: 2 MG, 1X/DAY:QD
     Route: 048
  3. INTUNIV [Suspect]
     Dosage: 3 MG, 1X/DAY:QD
     Route: 048
  4. INTUNIV [Suspect]
     Dosage: 4 MG, 1X/DAY:QD
     Route: 048
     Dates: start: 201304
  5. INTUNIV [Suspect]
     Dosage: 3 MG, 1X/DAY:QD
     Route: 048
     Dates: end: 201303
  6. FOCALIN [Concomitant]
     Indication: ATTENTION DEFICIT/HYPERACTIVITY DISORDER
     Dosage: 10 MG, 1X/DAY:QD
     Route: 048
  7. STRATTERA [Concomitant]
     Indication: ATTENTION DEFICIT/HYPERACTIVITY DISORDER
     Dosage: 50 MG, 1X/DAY:QD (^50MG^)
     Route: 048
  8. ZOLOFT [Concomitant]
     Indication: DEPRESSION
     Dosage: UNK, 1X/DAY:QD (UNKNOWN MG)
     Route: 048

REACTIONS (1)
  - Syncope [Recovered/Resolved]
